FAERS Safety Report 5607096-X (Version None)
Quarter: 2008Q1

REPORT INFORMATION
  Report Type: 
  Country: None (occurrence: None)
  Receive Date: 20080129
  Receipt Date: 20080118
  Transmission Date: 20080703
  Serious: Yes (Hospitalization)
  Sender: FDA-Public Use
  Company Number: GB-PFIZER INC-2008006002

PATIENT
  Age: 89 Year
  Sex: Female

DRUGS (3)
  1. DOXAZOSIN [Suspect]
     Indication: HYPERTENSION
     Route: 048
  2. LISINOPRIL [Suspect]
     Indication: HYPERTENSION
     Route: 048
  3. DILTIAZEM HCL [Concomitant]

REACTIONS (5)
  - DIZZINESS [None]
  - FALL [None]
  - FEMUR FRACTURE [None]
  - HYPOTENSION [None]
  - MITRAL VALVE INCOMPETENCE [None]
